FAERS Safety Report 16983537 (Version 1)
Quarter: 2019Q4

REPORT INFORMATION
  Report Type: Spontaneous
  Country: FR (occurrence: FR)
  Receive Date: 20191101
  Receipt Date: 20191101
  Transmission Date: 20200122
  Serious: Yes (Other)
  Sender: FDA-Public Use
  Company Number: FR-JNJFOC-20191044585

PATIENT
  Age: 43 Year
  Sex: Female

DRUGS (4)
  1. DEXAFREE [Concomitant]
     Active Substance: DEXAMETHASONE SODIUM PHOSPHATE
  2. REMICADE [Suspect]
     Active Substance: INFLIXIMAB
     Indication: PRODUCT USED FOR UNKNOWN INDICATION
     Route: 042
  3. CORTANCYL [Concomitant]
     Active Substance: PREDNISONE
     Route: 065
  4. MYDRIATICUM [Concomitant]
     Active Substance: TROPICAMIDE
     Route: 065

REACTIONS (1)
  - Polyarthritis [Unknown]
